FAERS Safety Report 8058347-6 (Version None)
Quarter: 2012Q1

REPORT INFORMATION
  Report Type: 
  Country: None (occurrence: None)
  Receive Date: 20120120
  Receipt Date: 20120109
  Transmission Date: 20120608
  Serious: Yes (Other)
  Sender: FDA-Public Use
  Company Number: CA-ELI_LILLY_AND_COMPANY-CA201201002323

PATIENT
  Age: 30 Year
  Sex: Female

DRUGS (2)
  1. ABILIFY [Concomitant]
     Dosage: 7.5 MG, QD
     Route: 048
  2. ZYPREXA [Suspect]

REACTIONS (6)
  - AKATHISIA [None]
  - AGITATION [None]
  - CONDITION AGGRAVATED [None]
  - ANXIETY [None]
  - BIPOLAR DISORDER [None]
  - WEIGHT INCREASED [None]
